FAERS Safety Report 4511357-5 (Version None)
Quarter: 2004Q4

REPORT INFORMATION
  Report Type: 
  Country: None (occurrence: None)
  Receive Date: 20041123
  Receipt Date: 20041123
  Transmission Date: 20050328
  Serious: Yes (Hospitalization)
  Sender: FDA-Public Use
  Company Number: None

PATIENT
  Sex: Male
  Weight: 72.5755 kg

DRUGS (2)
  1. VANCOMYCIN [Suspect]
     Indication: ARTHRITIS BACTERIAL
     Dosage: 1750 Q24 H IV
     Route: 042
     Dates: start: 20040610, end: 20040701
  2. VANCOMYCIN [Suspect]
     Indication: CELLULITIS
     Dosage: 1750 Q24 H IV
     Route: 042
     Dates: start: 20040610, end: 20040701

REACTIONS (3)
  - ANTIBIOTIC LEVEL ABOVE THERAPEUTIC [None]
  - BLOOD POTASSIUM INCREASED [None]
  - NEPHRITIS INTERSTITIAL [None]
